FAERS Safety Report 14176864 (Version 1)
Quarter: 2017Q4

REPORT INFORMATION
  Report Type: Spontaneous
  Country: US (occurrence: US)
  Receive Date: 20171110
  Receipt Date: 20171110
  Transmission Date: 20180321
  Serious: No
  Sender: FDA-Public Use
  Company Number: US-UNICHEM PHARMACEUTICALS (USA) INC-UCM201709-000230

PATIENT
  Sex: Male
  Weight: 90.8 kg

DRUGS (11)
  1. LEVOTHYROXINE. [Concomitant]
     Active Substance: LEVOTHYROXINE
  2. HYDROCHLOROTHIAZIDE. [Concomitant]
     Active Substance: HYDROCHLOROTHIAZIDE
  3. FISH OIL [Concomitant]
     Active Substance: FISH OIL
  4. METOPROLOL. [Concomitant]
     Active Substance: METOPROLOL
  5. ASPIRIN. [Concomitant]
     Active Substance: ASPIRIN
  6. OCCUTIDE [Concomitant]
  7. PRAVASTATIN. [Concomitant]
     Active Substance: PRAVASTATIN
  8. AMLODIPINE BESYLATE 10MG TABLETS USP [Suspect]
     Active Substance: AMLODIPINE BESYLATE
     Indication: HYPERTENSION
     Route: 048
  9. MELOXICAM. [Concomitant]
     Active Substance: MELOXICAM
  10. MULTIVITAMIN [Concomitant]
     Active Substance: VITAMINS
  11. C-500 [Concomitant]

REACTIONS (1)
  - Joint swelling [Not Recovered/Not Resolved]
